FAERS Safety Report 13068453 (Version 1)
Quarter: 2016Q4

REPORT INFORMATION
  Report Type: Spontaneous
  Country: DE (occurrence: DE)
  Receive Date: 20161228
  Receipt Date: 20161228
  Transmission Date: 20170207
  Serious: Yes (Death)
  Sender: FDA-Public Use
  Company Number: GXKR2016DE005902

PATIENT

DRUGS (2)
  1. OLANZAPIN [Suspect]
     Active Substance: OLANZAPINE
     Indication: PRODUCT USED FOR UNKNOWN INDICATION
     Dosage: INITIALLY 40 MG PER DAY, LATER 10  MG - 20 MG PER DAY
     Route: 065
  2. HALDOL [Suspect]
     Active Substance: HALOPERIDOL
     Indication: PRODUCT USED FOR UNKNOWN INDICATION
     Dosage: 16 MG, UNK
     Route: 065
     Dates: end: 20160723

REACTIONS (14)
  - Cerebellar syndrome [Fatal]
  - Dysarthria [Fatal]
  - General physical health deterioration [Fatal]
  - Cough [Fatal]
  - Bradyphrenia [Fatal]
  - Eye movement disorder [Fatal]
  - Dysphagia [Fatal]
  - Body temperature increased [Fatal]
  - Dry mouth [Fatal]
  - Gait disturbance [Fatal]
  - Pneumonia aspiration [Fatal]
  - Muscle rigidity [Fatal]
  - Neuroleptic malignant syndrome [Fatal]
  - Sepsis [Fatal]

NARRATIVE: CASE EVENT DATE: 20160414
